FAERS Safety Report 13790057 (Version 2)
Quarter: 2017Q3

REPORT INFORMATION
  Report Type: Spontaneous
  Country: US (occurrence: US)
  Receive Date: 20170725
  Receipt Date: 20170811
  Transmission Date: 20171127
  Serious: Yes (Other)
  Sender: FDA-Public Use
  Company Number: US-009507513-1707USA006187

PATIENT
  Age: 67 Year
  Sex: Female

DRUGS (4)
  1. FOSAMAX [Suspect]
     Active Substance: ALENDRONATE SODIUM
     Indication: MULTIPLE FRACTURES
     Dosage: DSOE REDUCED BY 50 %
     Route: 048
  2. FOSAMAX [Suspect]
     Active Substance: ALENDRONATE SODIUM
     Indication: COMPRESSION FRACTURE
     Dosage: FULL DOSE
     Route: 048
  3. CALCITROL [Concomitant]
     Active Substance: CALCITRIOL
     Indication: COMPRESSION FRACTURE
  4. CALCITROL [Concomitant]
     Active Substance: CALCITRIOL
     Indication: MULTIPLE FRACTURES
     Dosage: LOW DOSE

REACTIONS (1)
  - Low turnover osteopathy [Recovering/Resolving]
